FAERS Safety Report 11391822 (Version 1)
Quarter: 2015Q3

REPORT INFORMATION
  Report Type: Spontaneous
  Country: US (occurrence: US)
  Receive Date: 20150818
  Receipt Date: 20150818
  Transmission Date: 20151125
  Serious: No
  Sender: FDA-Public Use
  Company Number: US-PFIZER INC-2015272420

PATIENT

DRUGS (1)
  1. EFFEXOR [Suspect]
     Active Substance: VENLAFAXINE HYDROCHLORIDE
     Indication: INSOMNIA
     Dosage: 75 MG, 2X/DAY

REACTIONS (3)
  - Pre-existing condition improved [Unknown]
  - Product use issue [Unknown]
  - Therapeutic response unexpected [Unknown]
